FAERS Safety Report 15760713 (Version 3)
Quarter: 2019Q3

REPORT INFORMATION
  Report Type: Spontaneous
  Country: US (occurrence: US)
  Receive Date: 20181226
  Receipt Date: 20190718
  Transmission Date: 20191004
  Serious: Yes (Other)
  Sender: FDA-Public Use
  Company Number: US-PFIZER INC-2017549943

PATIENT
  Age: 61 Year
  Sex: Female
  Weight: 74.84 kg

DRUGS (3)
  1. GENOTROPIN [Suspect]
     Active Substance: SOMATROPIN
     Dosage: 0.8 MG, DAILY
  2. GENOTROPIN [Suspect]
     Active Substance: SOMATROPIN
     Dosage: 0.8 MG, 1X/DAY (EACH NIGHT INJECTED IN THIGH)
     Dates: start: 201201
  3. GENOTROPIN [Suspect]
     Active Substance: SOMATROPIN
     Dosage: 0.5 - 0.8 MG
     Dates: start: 201106

REACTIONS (14)
  - Tri-iodothyronine free increased [Unknown]
  - Blood thyroid stimulating hormone increased [Unknown]
  - Wrong technique in device usage process [Unknown]
  - Alanine aminotransferase increased [Unknown]
  - Blood glucose increased [Unknown]
  - Spinal fracture [Unknown]
  - Blood alkaline phosphatase increased [Unknown]
  - Blood thyroid stimulating hormone decreased [Unknown]
  - Blood calcium increased [Unknown]
  - Blood urea nitrogen/creatinine ratio decreased [Unknown]
  - Blood urea decreased [Unknown]
  - Thyroid cancer [Unknown]
  - Thyroxine free increased [Unknown]
  - Aspartate aminotransferase increased [Unknown]

NARRATIVE: CASE EVENT DATE: 20171204
